FAERS Safety Report 8797012 (Version 1)
Quarter: 2012Q4

REPORT INFORMATION
  Report Type: 
  Country: JP (occurrence: JP)
  Receive Date: 20120920
  Receipt Date: 20120920
  Transmission Date: 20130627
  Serious: Yes (Hospitalization)
  Sender: FDA-Public Use
  Company Number: PHHY2012JP076042

PATIENT
  Age: 78 Year
  Sex: Female

DRUGS (1)
  1. DIOVAN [Suspect]
     Indication: HYPERTENSION
     Dosage: 80 mg, daily
     Route: 048

REACTIONS (4)
  - Accidental exposure to product [Recovered/Resolved]
  - Wrong technique in drug usage process [None]
  - Product blister packaging issue [None]
  - Foreign body [None]
